FAERS Safety Report 5627328-1 (Version None)
Quarter: 2008Q1

REPORT INFORMATION
  Report Type: 
  Country: None (occurrence: None)
  Receive Date: 20080215
  Receipt Date: 20080205
  Transmission Date: 20080703
  Serious: Yes (Other)
  Sender: FDA-Public Use
  Company Number: US-JNJFOC-20080201813

PATIENT
  Sex: Female

DRUGS (2)
  1. DITROPAN XL [Suspect]
     Indication: BLADDER DISORDER
     Route: 048
  2. DITROPAN [Suspect]
     Indication: BLADDER DISORDER
     Route: 048

REACTIONS (13)
  - ABDOMINAL PAIN [None]
  - BLADDER PAIN [None]
  - BLOOD CHOLESTEROL INCREASED [None]
  - BURSITIS [None]
  - DRY MOUTH [None]
  - INSOMNIA [None]
  - NAUSEA [None]
  - POLLAKIURIA [None]
  - SINUS DISORDER [None]
  - SINUS HEADACHE [None]
  - SPEECH DISORDER [None]
  - TRANSIENT ISCHAEMIC ATTACK [None]
  - URINARY TRACT INFECTION [None]
